FAERS Safety Report 9522575 (Version 4)
Quarter: 2015Q3

REPORT INFORMATION
  Report Type: Spontaneous
  Country: US (occurrence: US)
  Receive Date: 20130913
  Receipt Date: 20150723
  Transmission Date: 20151125
  Serious: Yes (Hospitalization, Other)
  Sender: FDA-Public Use
  Company Number: US-BAYER-2013-110541

PATIENT
  Age: 27 Year
  Sex: Female
  Weight: 73.47 kg

DRUGS (2)
  1. TRANEXAMIC ACID. [Concomitant]
     Active Substance: TRANEXAMIC ACID
  2. MIRENA [Suspect]
     Active Substance: LEVONORGESTREL
     Indication: CONTRACEPTION
     Dosage: 20 MCG/24HR, CONT
     Route: 015
     Dates: start: 20080213, end: 20080404

REACTIONS (7)
  - Genital haemorrhage [None]
  - Medical device complication [None]
  - Medical device pain [None]
  - Medical device discomfort [None]
  - Uterine perforation [None]
  - Injury [None]
  - Vaginal haemorrhage [None]

NARRATIVE: CASE EVENT DATE: 200804
